FAERS Safety Report 11290771 (Version 1)
Quarter: 2015Q3

REPORT INFORMATION
  Report Type: Spontaneous
  Country: NL (occurrence: None)
  Receive Date: 20150720
  Receipt Date: 20150720
  Transmission Date: 20151125
  Serious: No
  Sender: FDA-Public Use
  Company Number: 1507NLD004282

PATIENT
  Age: 58 Year
  Sex: Female
  Weight: 57 kg

DRUGS (1)
  1. CEDAX [Suspect]
     Active Substance: CEFTIBUTEN DIHYDRATE
     Indication: URINARY TRACT INFECTION
     Dosage: 1 TIME A DAY 1 UNIT(S), EXTRA INFO: 400 MG, ORAL
     Route: 048
     Dates: start: 20150619, end: 20150625

REACTIONS (2)
  - Neuralgia [None]
  - Abdominal pain upper [None]

NARRATIVE: CASE EVENT DATE: 20150619
